FAERS Safety Report 9275050 (Version 2)
Quarter: 2013Q3

REPORT INFORMATION
  Report Type: Spontaneous
  Country: BR (occurrence: BR)
  Receive Date: 20130507
  Receipt Date: 20130715
  Transmission Date: 20140515
  Serious: Yes (Other)
  Sender: FDA-Public Use
  Company Number: BR-PFIZER INC-2013139986

PATIENT
  Age: 68 Year
  Sex: Male
  Weight: 78 kg

DRUGS (6)
  1. ATENOLOL [Suspect]
     Indication: HYPERTENSION
     Dosage: 50 MG, DAILY
     Route: 048
     Dates: start: 1998
  2. ATENOLOL [Suspect]
     Dosage: 50 MG, 2X/DAY
     Route: 048
  3. ATENOLOL [Suspect]
     Dosage: UNK
     Route: 065
  4. SIMVASTATIN [Concomitant]
     Indication: BLOOD CHOLESTEROL INCREASED
     Dosage: UNK
     Route: 065
     Dates: start: 201301
  5. GLIFAGE [Concomitant]
     Indication: DIABETES MELLITUS
     Dosage: UNK
     Route: 065
     Dates: start: 201301
  6. ZYLORIC [Concomitant]
     Indication: BLOOD URIC ACID INCREASED
     Dosage: UNK
     Route: 065
     Dates: start: 201301

REACTIONS (4)
  - Blood pressure increased [Recovering/Resolving]
  - Diabetes mellitus [Recovering/Resolving]
  - Blood cholesterol increased [Unknown]
  - Off label use [Not Recovered/Not Resolved]
